FAERS Safety Report 4808613-X (Version None)
Quarter: 2005Q4

REPORT INFORMATION
  Report Type: 
  Country: None (occurrence: None)
  Receive Date: 20051021
  Receipt Date: 20021010
  Transmission Date: 20060501
  Serious: Yes (Hospitalization)
  Sender: FDA-Public Use
  Company Number: US_021088952

PATIENT
  Age: 45 Year
  Sex: Male
  Weight: 72 kg

DRUGS (2)
  1. ZYPREXA [Suspect]
     Indication: SCHIZOPHRENIA
     Dosage: 250 MG
     Dates: start: 20010301
  2. HALOPERIDOL [Concomitant]

REACTIONS (10)
  - BLOOD CREATINE PHOSPHOKINASE INCREASED [None]
  - DEPRESSED LEVEL OF CONSCIOUSNESS [None]
  - DRUG HYPERSENSITIVITY [None]
  - EOSINOPHIL PERCENTAGE INCREASED [None]
  - ERYTHEMA [None]
  - OVERDOSE [None]
  - PRURITUS [None]
  - RESTLESSNESS [None]
  - SUICIDE ATTEMPT [None]
  - WHITE BLOOD CELL COUNT INCREASED [None]
